FAERS Safety Report 15569929 (Version 1)
Quarter: 2018Q4

REPORT INFORMATION
  Report Type: Report from Study
  Country: KR (occurrence: KR)
  Receive Date: 20181031
  Receipt Date: 20181031
  Transmission Date: 20190205
  Serious: Yes (Hospitalization)
  Sender: FDA-Public Use
  Company Number: KR-ROCHE-2201422

PATIENT
  Age: 69 Year
  Sex: Male
  Weight: 61.4 kg

DRUGS (13)
  1. LANSTON [Concomitant]
     Active Substance: LANSOPRAZOLE
     Route: 065
     Dates: start: 20180408
  2. ATEZOLIZUMAB. [Suspect]
     Active Substance: ATEZOLIZUMAB
     Indication: RENAL CELL CARCINOMA
     Dosage: ON15/OCT/2018, HE RECEIVED THE MOST RECENT DOSE OF ATEZOLIZUMAB PRIOR TO SERIOUS ADVERSE EVENT.
     Route: 042
     Dates: start: 20180122
  3. ASPIRIN PROTECT [Concomitant]
     Active Substance: ASPIRIN
     Route: 065
     Dates: start: 20180315, end: 20181021
  4. THRUPAS [Concomitant]
     Active Substance: SILODOSIN
     Route: 065
     Dates: start: 20180807
  5. TWOLION [Concomitant]
     Route: 048
     Dates: start: 20181002
  6. RO 6874281 (FAP IL2V MAB) [Suspect]
     Active Substance: RO-6874281
     Indication: RENAL CELL CARCINOMA
     Dosage: WEEKLY UNTIL C2 AND FROM C3 BIWEEKLY.?ON 15/OCT/2018, HE RECEIVED THE MOST RECENT DOSE OF RO 6874281
     Route: 042
     Dates: start: 20180122
  7. PELUBI CR [Concomitant]
     Route: 065
     Dates: start: 20180518
  8. PROSCAR [Concomitant]
     Active Substance: FINASTERIDE
     Route: 065
     Dates: start: 20180904
  9. LIPITOR [Concomitant]
     Active Substance: ATORVASTATIN CALCIUM
     Route: 065
     Dates: start: 20170525
  10. TRAVOCORT [Concomitant]
     Route: 065
     Dates: start: 20181002
  11. NUCYNTA ER [Concomitant]
     Active Substance: TAPENTADOL HYDROCHLORIDE
     Route: 065
     Dates: start: 20180129
  12. MOTILITONE [Concomitant]
     Active Substance: HERBALS
     Route: 065
     Dates: start: 20180518
  13. NITROGLYCERIN. [Concomitant]
     Active Substance: NITROGLYCERIN
     Route: 065
     Dates: start: 1998

REACTIONS (1)
  - Atrioventricular block complete [Recovered/Resolved]

NARRATIVE: CASE EVENT DATE: 20181016
